FAERS Safety Report 18511777 (Version 1)
Quarter: 2020Q4

REPORT INFORMATION
  Report Type: Report from Study
  Country: MX (occurrence: MX)
  Receive Date: 20201117
  Receipt Date: 20201117
  Transmission Date: 20210114
  Serious: Yes (Other)
  Sender: FDA-Public Use
  Company Number: NVSC2020MX305694

PATIENT
  Sex: Male
  Weight: 104 kg

DRUGS (1)
  1. EXFORGE [Suspect]
     Active Substance: AMLODIPINE BESYLATE\VALSARTAN
     Indication: HYPERTENSION
     Dosage: 2 DF, QD
     Route: 048
     Dates: start: 2018

REACTIONS (2)
  - Deafness bilateral [Unknown]
  - Product prescribing error [Unknown]

NARRATIVE: CASE EVENT DATE: 2018
